FAERS Safety Report 5336740-X (Version None)
Quarter: 2007Q2

REPORT INFORMATION
  Report Type: 
  Country: None (occurrence: None)
  Receive Date: 20070529
  Receipt Date: 20070515
  Transmission Date: 20071010
  Serious: Yes (Hospitalization, Other)
  Sender: FDA-Public Use
  Company Number: PHHO2007PL06691

PATIENT
  Age: 77 Year
  Sex: Female
  Weight: 81.6 kg

DRUGS (5)
  1. ZOLEDRONIC ACID [Suspect]
     Indication: OSTEOPOROSIS POSTMENOPAUSAL
     Dosage: DOUBLE BLIND
     Route: 042
     Dates: start: 20051110
  2. CALCIUM CHLORIDE [Concomitant]
     Indication: OSTEOPOROSIS POSTMENOPAUSAL
  3. VITAMIN D [Concomitant]
     Indication: OSTEOPOROSIS POSTMENOPAUSAL
  4. ATENOLOL [Suspect]
     Indication: HYPERTENSION
  5. DICLOFENAC [Suspect]

REACTIONS (11)
  - ALANINE AMINOTRANSFERASE INCREASED [None]
  - ASPARTATE AMINOTRANSFERASE INCREASED [None]
  - BLINDNESS [None]
  - CATARACT [None]
  - CATARACT OPERATION [None]
  - CONCOMITANT DISEASE PROGRESSION [None]
  - GLAUCOMA [None]
  - HEPATIC LESION [None]
  - LENS IMPLANT [None]
  - RETINOPATHY [None]
  - VISION BLURRED [None]
